FAERS Safety Report 15933786 (Version 1)
Quarter: 2019Q1

REPORT INFORMATION
  Report Type: Spontaneous
  Country: CN (occurrence: CN)
  Receive Date: 20190207
  Receipt Date: 20190207
  Transmission Date: 20190417
  Serious: Yes (Hospitalization, Other)
  Sender: FDA-Public Use
  Company Number: CN-PFIZER INC-2019051547

PATIENT
  Age: 72 Year
  Sex: Female
  Weight: 45 kg

DRUGS (2)
  1. LIPITOR [Suspect]
     Active Substance: ATORVASTATIN CALCIUM
     Indication: LACUNAR INFARCTION
     Dosage: 20 MG, 1X/DAY (QN)
     Route: 048
     Dates: start: 20180301, end: 20190128
  2. LIPITOR [Suspect]
     Active Substance: ATORVASTATIN CALCIUM
     Indication: CEREBROVASCULAR ACCIDENT PROPHYLAXIS

REACTIONS (5)
  - Tremor [Unknown]
  - Blood creatine phosphokinase increased [Recovering/Resolving]
  - Blood pressure increased [Recovering/Resolving]
  - Hepatic function abnormal [Recovering/Resolving]
  - Muscle tightness [Unknown]

NARRATIVE: CASE EVENT DATE: 20190129
